FAERS Safety Report 6393328-X (Version None)
Quarter: 2009Q4

REPORT INFORMATION
  Report Type: 
  Country: None (occurrence: None)
  Receive Date: 20091008
  Receipt Date: 20091008
  Transmission Date: 20100525
  Serious: Yes (Hospitalization)
  Sender: FDA-Public Use
  Company Number: PHHO2008DE12557

PATIENT
  Sex: Male
  Weight: 73 kg

DRUGS (3)
  1. STI571/CGP57148B T35717+TAB [Suspect]
     Indication: CHRONIC MYELOID LEUKAEMIA
     Dosage: 400 MG, QD
     Route: 048
     Dates: start: 20080902, end: 20081017
  2. ANTICOAGULANTS [Concomitant]
  3. ASPIRIN [Concomitant]
     Dosage: UNK

REACTIONS (9)
  - ABDOMINAL PAIN UPPER [None]
  - BACK PAIN [None]
  - BLAST CRISIS IN MYELOGENOUS LEUKAEMIA [None]
  - CHLOROMA [None]
  - CHRONIC MYELOID LEUKAEMIA [None]
  - DRUG INEFFECTIVE [None]
  - GASTRITIS [None]
  - HEPATIC CYST [None]
  - PLEURAL EFFUSION [None]
